FAERS Safety Report 6384682-3 (Version None)
Quarter: 2009Q3

REPORT INFORMATION
  Report Type: 
  Country: None (occurrence: None)
  Receive Date: 20090929
  Receipt Date: 20090915
  Transmission Date: 20100115
  Serious: Yes (Hospitalization)
  Sender: FDA-Public Use
  Company Number: WAES 0909CHN00035

PATIENT
  Age: 77 Year
  Sex: Male

DRUGS (6)
  1. TAB LAROPIPRANT (+) NIACIN [Suspect]
     Indication: HIGH DENSITY LIPOPROTEIN DECREASED
     Dosage: 20 MG-1 GM/DAILY PO
     Route: 048
     Dates: start: 20090909, end: 20090912
  2. SIMVASTATIN [Suspect]
     Indication: HYPERCHOLESTEROLAEMIA
     Dosage: 40 MG/DAILY PO
     Route: 048
     Dates: start: 20090812, end: 20090914
  3. ASPIRIN [Concomitant]
  4. FELODIPINE [Concomitant]
  5. METFORMIN HCL [Concomitant]
  6. METOPROLOL [Concomitant]

REACTIONS (1)
  - DRUG ERUPTION [None]
